FAERS Safety Report 9252005 (Version 1)
Quarter: 2013Q1

REPORT INFORMATION
  Report Type: Spontaneous
  Country: US (occurrence: None)
  Receive Date: 20130305
  Receipt Date: 20130305
  Transmission Date: 20140127
  Serious: Yes (Disabling, Other)
  Sender: FDA-Public Use
  Company Number: 163-21880-12092627

PATIENT
  Age: 51 Year
  Sex: Female
  Weight: 84.82 kg

DRUGS (22)
  1. REVLIMID [Suspect]
     Indication: PLASMA CELL MYELOMA
     Dosage: 28 IN 28 D
     Route: 048
     Dates: start: 20120303
  2. STEROIDS (OTHER THERAPEUTIC PRODUCTS) [Concomitant]
  3. ASA LOW DOSE (ACETYLSALICYLIC ACID) [Concomitant]
  4. CARVEDILOL (CARVEDILOL) [Concomitant]
  5. CLONAZEPAM (CLONAZEPAM) (CLONAZEPAM) [Concomitant]
  6. CONCERTA (METHYLPENIDATE HYDROCHLORIDE) [Concomitant]
  7. GLIMEPIRIDE (GLIMEPIRIDE) [Concomitant]
  8. HUMALOG (INSULIN LISPRO) [Concomitant]
  9. JANUVIA (SITAGLIPTIN PHOSPHATE) [Concomitant]
  10. LISINOPRIL (LISINOPRIL) [Concomitant]
  11. MAGNESIUM (MAGNESIUM) [Concomitant]
  12. METFORMIN (METFORMIN) [Concomitant]
  13. NITRO-DUR (GLYCERYL TRINITRATE) [Concomitant]
  14. PANTOPRAZOLE (PANTOPRAZOLE) [Concomitant]
  15. PHENERGAN (PROMETHAZINE HYDROCHLORIDE) [Concomitant]
  16. POTASSIUM (POTASSIUM) [Concomitant]
  17. PRAVASTATIN (PRAVASTATIN) [Concomitant]
  18. PROZAC (FLUOXETINE HYDROCHLORIDE) [Concomitant]
  19. SYMBYAX [Concomitant]
  20. VICODIN (VICODIN) [Concomitant]
  21. WARFARIN (WARFARIN) [Concomitant]
  22. ZETIA (EZETIMIBE) [Concomitant]

REACTIONS (2)
  - Vision blurred [None]
  - Eye swelling [None]
